FAERS Safety Report 7905710-7 (Version None)
Quarter: 2011Q4

REPORT INFORMATION
  Report Type: 
  Country: None (occurrence: None)
  Receive Date: 20111108
  Receipt Date: 20111024
  Transmission Date: 20120403
  Serious: Yes (Life-Threatening, Hospitalization, Other)
  Sender: FDA-Public Use
  Company Number: 2011MA015615

PATIENT
  Age: 14 Year
  Sex: Female

DRUGS (1)
  1. CARBAMAZEPINE [Suspect]

REACTIONS (7)
  - ONYCHOMADESIS [None]
  - PHOTOPHOBIA [None]
  - TOXIC EPIDERMAL NECROLYSIS [None]
  - TONGUE DISORDER [None]
  - GENITAL ULCERATION [None]
  - SKIN HYPOPIGMENTATION [None]
  - MOUTH ULCERATION [None]
